FAERS Safety Report 5034431-6 (Version None)
Quarter: 2006Q2

REPORT INFORMATION
  Report Type: 
  Country: None (occurrence: None)
  Receive Date: 20060620
  Receipt Date: 20060606
  Transmission Date: 20061013
  Serious: Yes (Hospitalization)
  Sender: FDA-Public Use
  Company Number: 2006EN000129

PATIENT
  Age: 20 Year
  Sex: Female
  Weight: 52 kg

DRUGS (13)
  1. ONCASPAR [Suspect]
     Indication: ACUTE LYMPHOCYTIC LEUKAEMIA
     Dosage: 2500 IU; X1; IV
     Route: 042
     Dates: start: 20060424, end: 20060424
  2. FLAGYL [Suspect]
     Dosage: 500 MG
     Dates: start: 20060422, end: 20060430
  3. ZOVIRAX [Suspect]
     Dosage: 380 MG; IV
     Route: 042
     Dates: start: 20060422, end: 20060508
  4. AMIKLIN [Concomitant]
  5. CLAVENTIN [Concomitant]
  6. VANCOCYNE [Concomitant]
  7. BACTRIM [Concomitant]
  8. PLITICAN [Concomitant]
  9. AMBISOME [Concomitant]
  10. SPASFON [Concomitant]
  11. ZOPHREN [Concomitant]
  12. NUBIAN RHONE-POULENC RORER [Concomitant]
  13. ACETAMINOPHEN [Concomitant]

REACTIONS (4)
  - APLASIA [None]
  - MUCOSAL INFLAMMATION [None]
  - PANCREATITIS [None]
  - RECTAL HAEMORRHAGE [None]
